FAERS Safety Report 23127292 (Version 2)
Quarter: 2023Q4

REPORT INFORMATION
  Report Type: Spontaneous
  Country: FR (occurrence: FR)
  Receive Date: 20231031
  Receipt Date: 20231106
  Transmission Date: 20240110
  Serious: Yes (Hospitalization, Other)
  Sender: FDA-Public Use
  Company Number: None

PATIENT
  Age: 69 Year
  Sex: Male
  Weight: 68 kg

DRUGS (18)
  1. DUPIXENT [Suspect]
     Active Substance: DUPILUMAB
     Indication: Pemphigoid
     Dosage: 600 MG, 1X
     Route: 058
     Dates: start: 20230713, end: 20230713
  2. DUPIXENT [Suspect]
     Active Substance: DUPILUMAB
     Dosage: 300 MG, QOW
     Route: 058
     Dates: start: 2023
  3. PREDNISONE [Suspect]
     Active Substance: PREDNISONE
     Indication: Pemphigoid
     Dosage: 70 MG, QD,FOR 2 WEEKS, UNTIL 6 SEPTEMBER 2023
     Route: 048
     Dates: start: 20230324
  4. PREDNISONE [Suspect]
     Active Substance: PREDNISONE
     Dosage: 80 MG, QD,FOR ONE MONTH AND THEN AGAIN IN DECREASING DOSES
     Route: 048
     Dates: start: 20230708
  5. PREDNISONE [Suspect]
     Active Substance: PREDNISONE
     Dosage: 20 MG, QD,FOR 2 WEEKS, UNTIL 6 SEPTEMBER 2023
     Route: 048
     Dates: start: 20230824
  6. PREDNISONE [Suspect]
     Active Substance: PREDNISONE
     Dosage: 10 MG, QD
     Route: 048
     Dates: start: 20230907
  7. PREDNISONE [Suspect]
     Active Substance: PREDNISONE
     Dosage: 5 MG, QD
     Route: 048
     Dates: start: 20231012
  8. ACETAMINOPHEN [Concomitant]
     Active Substance: ACETAMINOPHEN
     Dosage: 3 TIMES A DAY (TID)
     Dates: start: 20230320
  9. ELIQUIS [Concomitant]
     Active Substance: APIXABAN
     Dosage: BID (MORNING, EVENING)
     Dates: start: 20230407
  10. BISOPROLOL [Concomitant]
     Active Substance: BISOPROLOL\BISOPROLOL FUMARATE
     Dosage: IN THE MORNING
     Dates: start: 20230630
  11. CETIRIZINE [Concomitant]
     Active Substance: CETIRIZINE HYDROCHLORIDE
     Dosage: IN THE EVENING
     Dates: start: 20230629
  12. OMEPRAZOLE [Concomitant]
     Active Substance: OMEPRAZOLE
     Dosage: IN THE EVENING
     Dates: start: 20230712
  13. LOPERAMIDE [Concomitant]
     Active Substance: LOPERAMIDE
     Dosage: MORNING, NOON AND EVENING
  14. PAROXETINE [Concomitant]
     Active Substance: PAROXETINE
     Dosage: IN THE MORNING
  15. OXAZEPAM [Concomitant]
     Active Substance: OXAZEPAM
     Dosage: BID (MORNING AND EVENING)
  16. CLOBETASOL PROPIONATE [Concomitant]
     Active Substance: CLOBETASOL PROPIONATE
     Dosage: 3 TUBES EVERY 2 DAYS AT THE TIME OF HOSPITALISATION
     Dates: start: 20230323
  17. DESONIDE [Concomitant]
     Active Substance: DESONIDE
     Dosage: 1 APPLICATION PER DAY ON THE FACE
     Dates: start: 20230705
  18. BETAMETHASONE VALERATE [Concomitant]
     Active Substance: BETAMETHASONE VALERATE
     Dosage: LOTION, 1 APPLICATION PER DAY ON THE SCALP
     Dates: start: 20230706

REACTIONS (4)
  - Pneumocystis jirovecii pneumonia [Recovered/Resolved]
  - Systemic candida [Recovered/Resolved]
  - Lymphopenia [Recovered/Resolved]
  - Product use in unapproved indication [Unknown]

NARRATIVE: CASE EVENT DATE: 20230101
